FAERS Safety Report 22660227 (Version 1)
Quarter: 2023Q2

REPORT INFORMATION
  Report Type: Spontaneous
  Country: None (occurrence: US)
  Receive Date: 20230630
  Receipt Date: 20230630
  Transmission Date: 20230722
  Serious: Yes (Hospitalization, Other)
  Sender: FDA-Public Use
  Company Number: US-Ascend Therapeutics US, LLC-2143288

PATIENT
  Sex: Male

DRUGS (19)
  1. ANDROGEL [Suspect]
     Active Substance: TESTOSTERONE
     Indication: Product used for unknown indication
     Route: 065
     Dates: start: 200809
  2. TESTOSTERONE [Suspect]
     Active Substance: TESTOSTERONE
     Route: 065
     Dates: start: 200809
  3. TRUVADA [Suspect]
     Active Substance: EMTRICITABINE\TENOFOVIR DISOPROXIL FUMARATE
     Route: 048
     Dates: start: 200707, end: 201503
  4. BIKTARVY [Suspect]
     Active Substance: BICTEGRAVIR SODIUM\EMTRICITABINE\TENOFOVIR ALAFENAMIDE FUMARATE
     Route: 048
     Dates: start: 201903, end: 2019
  5. KALETRA [Concomitant]
     Active Substance: LOPINAVIR\RITONAVIR
     Route: 048
     Dates: start: 200809, end: 201503
  6. METOPROLOL [Concomitant]
     Active Substance: METOPROLOL
     Route: 065
     Dates: start: 201510
  7. DOXEPIN(DOXEPIN) [Concomitant]
     Route: 065
     Dates: start: 200809
  8. PROTONIX(OMEPRAZOLE) [Concomitant]
     Route: 065
     Dates: start: 2008
  9. VALTREX [Concomitant]
     Active Substance: VALACYCLOVIR HYDROCHLORIDE
     Route: 065
     Dates: start: 2007, end: 2008
  10. TRIUMEQ [Concomitant]
     Active Substance: ABACAVIR SULFATE\DOLUTEGRAVIR SODIUM\LAMIVUDINE
     Route: 065
     Dates: start: 201604, end: 201801
  11. RIZATRIPTAN [Concomitant]
     Active Substance: RIZATRIPTAN
     Route: 065
     Dates: start: 202101
  12. SUBOXONE [Concomitant]
     Active Substance: BUPRENORPHINE HYDROCHLORIDE\NALOXONE HYDROCHLORIDE
     Route: 065
     Dates: start: 201504, end: 201905
  13. XANAX [Concomitant]
     Active Substance: ALPRAZOLAM
     Route: 065
     Dates: start: 200809
  14. GABAPENTIN [Concomitant]
     Active Substance: GABAPENTIN
     Route: 065
  15. VIAGRA [Concomitant]
     Active Substance: SILDENAFIL CITRATE
     Route: 065
  16. VENTOLIN(SALBUTAMOL) [Concomitant]
     Route: 065
     Dates: start: 201205, end: 201807
  17. AMLODIPINE [Concomitant]
     Active Substance: AMLODIPINE BESYLATE
     Route: 065
     Dates: start: 201708, end: 201805
  18. PROMETHAZINE [Concomitant]
     Active Substance: PROMETHAZINE HYDROCHLORIDE
     Route: 065
     Dates: start: 200809, end: 201708
  19. QUETIAPINE [Concomitant]
     Active Substance: QUETIAPINE
     Route: 065
     Dates: start: 201205, end: 201910

REACTIONS (29)
  - Acute kidney injury [Not Recovered/Not Resolved]
  - Clostridium difficile colitis [Recovered/Resolved]
  - Sepsis [Not Recovered/Not Resolved]
  - Acquired immunodeficiency syndrome [Not Recovered/Not Resolved]
  - Chronic kidney disease [Not Recovered/Not Resolved]
  - Diabetes mellitus [Not Recovered/Not Resolved]
  - Osteoporosis [Not Recovered/Not Resolved]
  - Bipolar disorder [Unknown]
  - Condition aggravated [Unknown]
  - Rotator cuff syndrome [Recovered/Resolved]
  - CD4 lymphocytes decreased [Unknown]
  - Impaired work ability [Unknown]
  - Pollakiuria [Unknown]
  - Muscle spasms [Unknown]
  - Pain [Not Recovered/Not Resolved]
  - Agoraphobia [Unknown]
  - Blood glucose increased [Not Recovered/Not Resolved]
  - Hypoaesthesia [Not Recovered/Not Resolved]
  - Anhedonia [Not Recovered/Not Resolved]
  - Blister [Not Recovered/Not Resolved]
  - Glomerular filtration rate decreased [Unknown]
  - Bone pain [Not Recovered/Not Resolved]
  - Calcinosis [Not Recovered/Not Resolved]
  - Gastrointestinal pain [Not Recovered/Not Resolved]
  - Abdominal discomfort [Not Recovered/Not Resolved]
  - Emotional distress [Unknown]
  - Hypertension [Not Recovered/Not Resolved]
  - Anxiety [Not Recovered/Not Resolved]
  - Insomnia [Not Recovered/Not Resolved]

NARRATIVE: CASE EVENT DATE: 20080101
